FAERS Safety Report 24706178 (Version 1)
Quarter: 2024Q4

REPORT INFORMATION
  Report Type: Spontaneous
  Country: US (occurrence: US)
  Receive Date: 20241206
  Receipt Date: 20241206
  Transmission Date: 20250115
  Serious: Yes (Hospitalization, Other)
  Sender: HIKMA
  Company Number: US-HIKMA PHARMACEUTICALS USA INC.-US-H14001-24-11240

PATIENT
  Age: 63 Year
  Sex: Male

DRUGS (11)
  1. BELATACEPT [Suspect]
     Active Substance: BELATACEPT
     Indication: Product used for unknown indication
     Dosage: 350 MILLIGRAM, QD
     Route: 042
  2. CLOFAZIMINE [Suspect]
     Active Substance: CLOFAZIMINE
     Indication: Product used for unknown indication
     Dosage: 100 MILLIGRAM, QD
     Route: 065
  3. EVEROLIMUS [Suspect]
     Active Substance: EVEROLIMUS
     Indication: Product used for unknown indication
     Dosage: UNKNOWN
     Route: 065
  4. MYCOPHENOLATE MOFETIL [Suspect]
     Active Substance: MYCOPHENOLATE MOFETIL
     Indication: Immunosuppression
     Dosage: 1000 MILLIGRAM, BID
     Route: 065
  5. MYCOPHENOLATE MOFETIL [Suspect]
     Active Substance: MYCOPHENOLATE MOFETIL
     Dosage: 500 MILLIGRAM, BID
     Route: 065
  6. PREDNISONE [Suspect]
     Active Substance: PREDNISONE
     Indication: Immunosuppression
     Dosage: 5 MILLIGRAM, QD
     Route: 065
  7. AZITHROMYCIN [Concomitant]
     Active Substance: AZITHROMYCIN
     Indication: Mycobacterium haemophilum infection
     Dosage: 500 MILLIGRAM, QD
     Route: 065
  8. CIPROFLOXACIN [Concomitant]
     Active Substance: CIPROFLOXACIN
     Indication: Mycobacterium haemophilum infection
     Dosage: 500 MILLIGRAM, BID
     Route: 065
  9. RIBAVIRIN [Concomitant]
     Active Substance: RIBAVIRIN
     Indication: Product used for unknown indication
     Dosage: FIVE-DAY COURSE
     Route: 048
  10. RIFABUTIN [Concomitant]
     Active Substance: RIFABUTIN
     Indication: Mycobacterium haemophilum infection
     Dosage: 300 MILLIGRAM, QD
     Route: 065
  11. TACROLIMUS [Concomitant]
     Active Substance: TACROLIMUS
     Indication: Product used for unknown indication
     Dosage: 1 MILLIGRAM, BID
     Route: 065

REACTIONS (2)
  - Skin lesion [Recovering/Resolving]
  - Mycobacterium haemophilum infection [Unknown]
